FAERS Safety Report 9206916 (Version 2)
Quarter: 2013Q4

REPORT INFORMATION
  Report Type: Spontaneous
  Country: US (occurrence: US)
  Receive Date: 20130403
  Receipt Date: 20131111
  Transmission Date: 20140711
  Serious: Yes (Other)
  Sender: FDA-Public Use
  Company Number: US-BAYER-2013-040352

PATIENT
  Sex: Female

DRUGS (5)
  1. YAZ [Suspect]
     Dosage: UNK
     Dates: start: 2010, end: 2011
  2. YASMIN [Suspect]
     Dosage: UNK
     Dates: start: 2010, end: 2011
  3. OCELLA [Suspect]
     Dosage: UNK
     Dates: start: 2010, end: 2011
  4. TOPAMAX [Concomitant]
     Dosage: 100 NG, BID
     Dates: start: 20110513
  5. VERAPAMIL [Concomitant]
     Dosage: 240 MG, UNK
     Dates: start: 20110513

REACTIONS (10)
  - Cholelithiasis [None]
  - Biliary dyskinesia [None]
  - Abdominal pain [None]
  - Injury [None]
  - Emotional distress [None]
  - Anxiety [None]
  - General physical health deterioration [None]
  - Pain [None]
  - Anhedonia [None]
  - Fear [None]
